FAERS Safety Report 9255963 (Version 1)
Quarter: 2013Q2

REPORT INFORMATION
  Report Type: Spontaneous
  Country: US (occurrence: US)
  Receive Date: 20130425
  Receipt Date: 20130425
  Transmission Date: 20140414
  Serious: Yes (Other)
  Sender: FDA-Public Use
  Company Number: CHPA2013US006890

PATIENT
  Age: 85 Year
  Sex: Male

DRUGS (1)
  1. 4 WAY UNKNOWN [Suspect]
     Dosage: UNK, UNK
     Route: 045

REACTIONS (2)
  - Drug dependence [Recovered/Resolved]
  - Drug withdrawal syndrome [Recovered/Resolved]
